FAERS Safety Report 5719878-4 (Version None)
Quarter: 2008Q2

REPORT INFORMATION
  Report Type: 
  Country: None (occurrence: None)
  Receive Date: 20080423
  Receipt Date: 20070413
  Transmission Date: 20081010
  Serious: Yes (Death)
  Sender: FDA-Public Use
  Company Number: 238066

PATIENT
  Age: 63 Year
  Sex: Male
  Weight: 83.4 kg

DRUGS (4)
  1. AVASTIN [Suspect]
     Indication: NON-SMALL CELL LUNG CANCER
     Dosage: 1275 MG, X3, INTRAVENOUS ; 950 MG, X2, INTRAVENOUS
     Route: 042
     Dates: start: 20061120
  2. TAXOL [Concomitant]
  3. CARBOPLATIN [Concomitant]
  4. ASPIRIN [Concomitant]

REACTIONS (1)
  - HAEMOPTYSIS [None]
